FAERS Safety Report 19440973 (Version 5)
Quarter: 2022Q3

REPORT INFORMATION
  Report Type: Spontaneous
  Country: JP (occurrence: JP)
  Receive Date: 20210621
  Receipt Date: 20220829
  Transmission Date: 20221026
  Serious: Yes (Hospitalization, Other)
  Sender: FDA-Public Use
  Company Number: NVSJ2021JP009009

PATIENT
  Age: 60 Year
  Sex: Male

DRUGS (6)
  1. PAZOPANIB [Interacting]
     Active Substance: PAZOPANIB
     Indication: Metastatic renal cell carcinoma
     Dosage: 800 MG, QD (SECOND-LINE THERAPY)
     Route: 065
  2. PAZOPANIB [Interacting]
     Active Substance: PAZOPANIB
     Dosage: 400 MG, QD (57 DAYS AFTER NIVOLUMAB DISCONTINUATION)
     Route: 065
  3. PAZOPANIB [Interacting]
     Active Substance: PAZOPANIB
     Dosage: 600 MG, QD (AFTER 81 DAYS OF NIVOLUMAB DISCONTINUATION)
     Route: 065
  4. NIVOLUMAB [Interacting]
     Active Substance: NIVOLUMAB
     Indication: Metastatic renal cell carcinoma
     Dosage: 3 MG/KG, Q3W (FIRST LINE COMBINATION THERAPY) FOR 4 CYCLES
     Route: 065
  5. NIVOLUMAB [Interacting]
     Active Substance: NIVOLUMAB
     Dosage: 3 MG/KG, Q2W (MONOTHERAPY) FOR A TOTAL OF 12 CYCLES
     Route: 065
  6. IPILIMUMAB [Suspect]
     Active Substance: IPILIMUMAB
     Indication: Metastatic renal cell carcinoma
     Dosage: 1 MG/KG, Q3W FOR 4 CYCLES (FIRST LINE COMBINATION THERAPY)
     Route: 065

REACTIONS (4)
  - Hepatotoxicity [Unknown]
  - Drug interaction [Unknown]
  - Disseminated intravascular coagulation [Recovered/Resolved]
  - Platelet count decreased [Unknown]
